FAERS Safety Report 16439615 (Version 3)
Quarter: 2019Q3

REPORT INFORMATION
  Report Type: Spontaneous
  Country: US (occurrence: US)
  Receive Date: 20190617
  Receipt Date: 20190903
  Transmission Date: 20191004
  Serious: Yes (Death, Hospitalization, Disabling, Other)
  Sender: FDA-Public Use
  Company Number: US-NOVOPROD-667541

PATIENT
  Age: 77 Year
  Sex: Female

DRUGS (3)
  1. LANTUS [Concomitant]
     Active Substance: INSULIN GLARGINE
     Indication: PRODUCT USED FOR UNKNOWN INDICATION
     Dosage: 10 IU, BID (10 UNITS TWICE DAILY)
     Route: 065
  2. HUMALOG [Concomitant]
     Active Substance: INSULIN LISPRO
     Indication: PRODUCT USED FOR UNKNOWN INDICATION
     Dosage: UNK
     Route: 065
  3. NOVOLOG [Suspect]
     Active Substance: INSULIN ASPART
     Indication: PRODUCT USED FOR UNKNOWN INDICATION
     Dosage: UNK
     Route: 058
     Dates: start: 2015, end: 20190702

REACTIONS (11)
  - Cardio-respiratory arrest [Fatal]
  - Blood glucose increased [Fatal]
  - Cerebrovascular accident [Fatal]
  - Dysphagia [Unknown]
  - Feeding disorder [Unknown]
  - Respiratory rate increased [Unknown]
  - Sepsis [Fatal]
  - Blood pressure fluctuation [Not Recovered/Not Resolved]
  - Urinary tract infection [Fatal]
  - Parkinson^s disease [Fatal]
  - Cardiac disorder [Fatal]

NARRATIVE: CASE EVENT DATE: 2015
